FAERS Safety Report 4809051-6 (Version None)
Quarter: 2005Q4

REPORT INFORMATION
  Report Type: 
  Country: None (occurrence: None)
  Receive Date: 20051021
  Receipt Date: 20050124
  Transmission Date: 20060501
  Serious: No
  Sender: FDA-Public Use
  Company Number: GBS050116463

PATIENT
  Age: 17 Year
  Sex: Female

DRUGS (2)
  1. ZYPREXA [Suspect]
     Dosage: 5 MG
     Dates: start: 20041104
  2. MIRTAZAPINE [Concomitant]

REACTIONS (1)
  - NEUTROPHIL COUNT DECREASED [None]
